FAERS Safety Report 13068274 (Version 1)
Quarter: 2016Q4

REPORT INFORMATION
  Report Type: Spontaneous
  Country: US (occurrence: US)
  Receive Date: 20161228
  Receipt Date: 20161228
  Transmission Date: 20170207
  Serious: Yes (Life-Threatening, Hospitalization)
  Sender: FDA-Public Use
  Company Number: US-TARO PHARMACEUTICALS USA.,INC-2016SUN00530

PATIENT
  Age: 66 Year
  Sex: Male

DRUGS (1)
  1. WARFARIN [Suspect]
     Active Substance: WARFARIN
     Indication: ATRIAL FIBRILLATION
     Dosage: UNK
     Route: 065

REACTIONS (5)
  - International normalised ratio increased [Recovered/Resolved]
  - Hypovolaemic shock [Recovered/Resolved]
  - Chest wall haematoma [Recovered/Resolved]
  - Ventricular tachycardia [Unknown]
  - Loss of consciousness [Recovered/Resolved]
